FAERS Safety Report 5961485-2 (Version None)
Quarter: 2008Q4

REPORT INFORMATION
  Report Type: 
  Country: None (occurrence: None)
  Receive Date: 20081121
  Receipt Date: 20081110
  Transmission Date: 20090506
  Serious: Yes (Hospitalization, Other)
  Sender: FDA-Public Use
  Company Number: CA-ELI_LILLY_AND_COMPANY-CA200809001216

PATIENT
  Age: 77 Year
  Sex: Female

DRUGS (4)
  1. FORTEO [Suspect]
     Indication: OSTEOPOROSIS
     Dosage: 20 UG, DAILY (1/D)
     Dates: start: 20080130
  2. LORAZEPAM [Concomitant]
  3. COLACE [Concomitant]
  4. CALCIUM WITH VITAMIN D [Concomitant]

REACTIONS (7)
  - FATIGUE [None]
  - GENERAL PHYSICAL HEALTH DETERIORATION [None]
  - JOINT SWELLING [None]
  - LIP DISCOLOURATION [None]
  - LUNG INFECTION [None]
  - OXYGEN SATURATION DECREASED [None]
  - TRIGEMINAL NEURALGIA [None]
